FAERS Safety Report 5324716-8 (Version None)
Quarter: 2007Q2

REPORT INFORMATION
  Report Type: 
  Country: None (occurrence: None)
  Receive Date: 20070515
  Receipt Date: 20070509
  Transmission Date: 20071010
  Serious: Yes (Death)
  Sender: FDA-Public Use
  Company Number: PHEH2007US06595

PATIENT
  Age: 58 Year
  Sex: Male
  Weight: 73.378 kg

DRUGS (1)
  1. CLOZARIL [Suspect]
     Indication: DELUSION
     Dosage: 100 MG BID, 150 MG QAM
     Route: 048
     Dates: start: 20030101

REACTIONS (4)
  - CARDIAC ARREST [None]
  - DYSPNOEA [None]
  - OXYGEN SATURATION DECREASED [None]
  - WHEEZING [None]
